FAERS Safety Report 7605858-0 (Version None)
Quarter: 2011Q3

REPORT INFORMATION
  Report Type: 
  Country: None (occurrence: None)
  Receive Date: 20110705
  Receipt Date: 20110623
  Transmission Date: 20111222
  Serious: Yes (Hospitalization)
  Sender: FDA-Public Use
  Company Number: 11-000709

PATIENT
  Age: 20 Year
  Sex: Female
  Weight: 81.6 kg

DRUGS (2)
  1. DORYX [Suspect]
     Indication: LYMPHADENOPATHY
     Dosage: 150 MG, QD, ORAL
     Route: 048
     Dates: start: 20100901, end: 20110201
  2. YAZ [Suspect]
     Indication: CONTRACEPTION
     Dosage: 1 TABLET QD, ORAL
     Route: 048
     Dates: start: 20101201

REACTIONS (10)
  - PRURITUS [None]
  - BLOOD PRESSURE IMMEASURABLE [None]
  - VOMITING [None]
  - DIARRHOEA [None]
  - HYPOTENSION [None]
  - WHITE BLOOD CELL COUNT INCREASED [None]
  - GASTROINTESTINAL DISORDER [None]
  - SYNCOPE [None]
  - URTICARIA [None]
  - ASCITES [None]
